FAERS Safety Report 12841121 (Version 1)
Quarter: 2016Q4

REPORT INFORMATION
  Report Type: Spontaneous
  Country: US (occurrence: US)
  Receive Date: 20161012
  Receipt Date: 20161012
  Transmission Date: 20170207
  Serious: No
  Sender: FDA-Public Use
  Company Number: US-NOVOPROD-512185

PATIENT
  Age: 59 Year
  Sex: Female

DRUGS (2)
  1. SAXENDA [Suspect]
     Active Substance: LIRAGLUTIDE
     Indication: OBESITY
     Dosage: 0.6 MG, QD
     Route: 058
     Dates: start: 20160911
  2. SAXENDA [Suspect]
     Active Substance: LIRAGLUTIDE
     Indication: HYPERTENSION

REACTIONS (4)
  - Nasopharyngitis [Unknown]
  - Hyperhidrosis [Recovered/Resolved]
  - Nausea [Not Recovered/Not Resolved]
  - Headache [Not Recovered/Not Resolved]
